FAERS Safety Report 4314172-0 (Version None)
Quarter: 2004Q1

REPORT INFORMATION
  Report Type: 
  Country: None (occurrence: None)
  Receive Date: 20040305
  Receipt Date: 20031204
  Transmission Date: 20041129
  Serious: No
  Sender: FDA-Public Use
  Company Number: PHEH2003US11088

PATIENT
  Age: 64 Year
  Sex: Female

DRUGS (1)
  1. FORADILE (FORMOTEROL FUMARATE) DRY POWDER INHALER [Suspect]

REACTIONS (1)
  - MEDICATION ERROR [None]
